FAERS Safety Report 10289496 (Version 1)
Quarter: 2014Q3

REPORT INFORMATION
  Report Type: Spontaneous
  Country: US (occurrence: None)
  Receive Date: 20140707
  Receipt Date: 20140707
  Transmission Date: 20150326
  Serious: Yes (Hospitalization)
  Sender: FDA-Public Use
  Company Number: UNT-2014-003077

PATIENT
  Age: 39 Year
  Sex: Female
  Weight: 81.6 kg

DRUGS (3)
  1. REMODULIN [Suspect]
     Active Substance: TREPROSTINIL
     Indication: COR PULMONALE CHRONIC
     Dosage: CONTINUING
     Route: 041
     Dates: start: 20130601
  2. REVATIO (SILDENAFIL CITRATE) [Concomitant]
  3. OPSUMIT (MACITENTAN) [Concomitant]

REACTIONS (1)
  - Convulsion [None]

NARRATIVE: CASE EVENT DATE: 20140622
